FAERS Safety Report 7801412-6 (Version None)
Quarter: 2011Q4

REPORT INFORMATION
  Report Type: 
  Country: None (occurrence: None)
  Receive Date: 20111005
  Receipt Date: 20110921
  Transmission Date: 20120403
  Serious: Yes (Death)
  Sender: FDA-Public Use
  Company Number: 1000024336

PATIENT
  Age: 48 Year
  Sex: Female

DRUGS (2)
  1. ZYPREXA [Suspect]
     Dosage: ORAL
     Route: 048
  2. CITALOPRAM HYDROBROMIDE [Suspect]
     Dosage: ORAL
     Route: 048

REACTIONS (6)
  - CARDIOMYOPATHY [None]
  - HYPERHIDROSIS [None]
  - SUDDEN DEATH [None]
  - CARDIAC ARREST [None]
  - HYPOXIA [None]
  - PALLOR [None]
